FAERS Safety Report 9004025 (Version 1)
Quarter: 2013Q1

REPORT INFORMATION
  Report Type: Spontaneous
  Country: US (occurrence: US)
  Receive Date: 20130108
  Receipt Date: 20130108
  Transmission Date: 20140127
  Serious: Yes (Other)
  Sender: FDA-Public Use
  Company Number: US-009507513-1301USA000961

PATIENT
  Age: 29 Year
  Sex: Female

DRUGS (6)
  1. MONTELUKAST SODIUM [Suspect]
     Dosage: 10 MG AT NIGHT
     Route: 048
  2. FLOVENT [Suspect]
     Dosage: 2 PUFFS/TWICE PER DAY/INHALED (INHALER) RESPIRATORY (INHALATION)
  3. FLONASE [Suspect]
     Dosage: 2 SPRAY/TWICE PER DAY/INTRANASAL (AQEOUS SPRAY) NASAL
  4. SEREVENT [Suspect]
     Dosage: 2 PUFFS/TWICE PER DAY/INHALED (INHALER) RESPIRATORY (INHALATION)
  5. BECLOVENT [Suspect]
     Dosage: 4 PUFFS/TWICE PER DAY/INHALED (INHALER) RESPIRATORY (INHALATION)
  6. ALBUTEROL SULFATE [Concomitant]

REACTIONS (2)
  - Abortion spontaneous [Unknown]
  - Maternal drugs affecting foetus [Unknown]
